FAERS Safety Report 25807142 (Version 1)
Quarter: 2025Q3

REPORT INFORMATION
  Report Type: Report from Study
  Country: AE (occurrence: AE)
  Receive Date: 20250916
  Receipt Date: 20250916
  Transmission Date: 20251021
  Serious: Yes (Other)
  Sender: ROCHE
  Company Number: AE-ROCHE-10000387704

PATIENT
  Age: 67 Year
  Sex: Female

DRUGS (1)
  1. AVASTIN [Suspect]
     Active Substance: BEVACIZUMAB
     Indication: Product used for unknown indication
     Route: 065

REACTIONS (4)
  - Laparotomy [Unknown]
  - Omentectomy [Unknown]
  - Salpingo-oophorectomy bilateral [Unknown]
  - Hysterectomy [Unknown]

NARRATIVE: CASE EVENT DATE: 20250811
